FAERS Safety Report 5104272-X (Version None)
Quarter: 2006Q3

REPORT INFORMATION
  Report Type: 
  Country: None (occurrence: None)
  Receive Date: 20060912
  Receipt Date: 20060912
  Transmission Date: 20061208
  Serious: Yes (Hospitalization)
  Sender: FDA-Public Use
  Company Number: None

PATIENT
  Sex: Male
  Weight: 90.7 kg

DRUGS (9)
  1. TINZAPARIN, PHARMION [Suspect]
     Indication: GLIOBLASTOMA MULTIFORME
     Dosage: 4500 IU SC QD  ONCE DAILY  SC
     Route: 058
     Dates: start: 20060821
  2. DILANTIN [Concomitant]
  3. LEXAPRO [Concomitant]
  4. PHRENILIN [Concomitant]
  5. OXYCODONE HCL [Concomitant]
  6. DEXAMETHASONE TAB [Concomitant]
  7. KEPPRA [Concomitant]
  8. CPT-11 [Concomitant]
  9. TEMODAR [Concomitant]

REACTIONS (4)
  - ABDOMINAL PAIN [None]
  - CLOSTRIDIAL INFECTION [None]
  - DIARRHOEA [None]
  - INFUSION RELATED REACTION [None]
